FAERS Safety Report 6008025-X (Version None)
Quarter: 2008Q4

REPORT INFORMATION
  Report Type: 
  Country: None (occurrence: None)
  Receive Date: 20081215
  Receipt Date: 20081210
  Transmission Date: 20090506
  Serious: Yes (Death)
  Sender: FDA-Public Use
  Company Number: 2008SP024615

PATIENT
  Age: 56 Year
  Sex: Male
  Weight: 57 kg

DRUGS (5)
  1. TEMODAL [Suspect]
     Indication: GLIOBLASTOMA MULTIFORME
     Dosage: 75 MG/M2; QD; PO, 150 MG/M2; QD; PO, 200 MG/M2; QD; PO
     Route: 048
     Dates: start: 20080718, end: 20080829
  2. TEMODAL [Suspect]
     Indication: GLIOBLASTOMA MULTIFORME
     Dosage: 75 MG/M2; QD; PO, 150 MG/M2; QD; PO, 200 MG/M2; QD; PO
     Route: 048
     Dates: start: 20080930, end: 20081004
  3. TEMODAL [Suspect]
     Indication: GLIOBLASTOMA MULTIFORME
     Dosage: 75 MG/M2; QD; PO, 150 MG/M2; QD; PO, 200 MG/M2; QD; PO
     Route: 048
     Dates: start: 20081028, end: 20081101
  4. FERON (INTERFERON) [Suspect]
     Indication: GLIOBLASTOMA MULTIFORME
     Dosage: 3 MIU; INDRP, 3 MIU; INDRP
     Route: 041
     Dates: start: 20081028, end: 20081028
  5. FERON (INTERFERON) [Suspect]
     Indication: GLIOBLASTOMA MULTIFORME
     Dosage: 3 MIU; INDRP, 3 MIU; INDRP
     Route: 041
     Dates: start: 20081031, end: 20081031

REACTIONS (3)
  - BONE MARROW FAILURE [None]
  - SEPSIS [None]
  - VOMITING [None]
